FAERS Safety Report 5256126-6 (Version None)
Quarter: 2007Q1

REPORT INFORMATION
  Report Type: 
  Country: None (occurrence: None)
  Receive Date: 20070301
  Receipt Date: 20070222
  Transmission Date: 20070707
  Serious: Yes (Hospitalization)
  Sender: FDA-Public Use
  Company Number: 2006BI017229

PATIENT
  Age: 60 Year
  Sex: Male

DRUGS (7)
  1. NATALIZUMAB [Suspect]
     Indication: MULTIPLE SCLEROSIS
     Dosage: 300 MG; QM; IV
     Route: 042
     Dates: start: 20060927, end: 20060927
  2. HYTRIN [Concomitant]
  3. BACLOFEN [Concomitant]
  4. OXYCODONE [Concomitant]
  5. NEURONTIN [Concomitant]
  6. FLOMAX [Concomitant]
  7. ZOLOFT [Concomitant]

REACTIONS (4)
  - ABSCESS INTESTINAL [None]
  - IATROGENIC INJURY [None]
  - INTESTINAL PERFORATION [None]
  - OESOPHAGEAL DISORDER [None]
